APPROVED DRUG PRODUCT: INDOMETHACIN
Active Ingredient: INDOMETHACIN
Strength: 25MG
Dosage Form/Route: CAPSULE;ORAL
Application: A070719 | Product #001
Applicant: HERITAGE PHARMA LABS INC
Approved: Feb 12, 1986 | RLD: No | RS: No | Type: DISCN